FAERS Safety Report 5404228-3 (Version None)
Quarter: 2007Q3

REPORT INFORMATION
  Report Type: 
  Country: None (occurrence: None)
  Receive Date: 20070802
  Receipt Date: 20070730
  Transmission Date: 20080115
  Serious: Yes (Hospitalization)
  Sender: FDA-Public Use
  Company Number: JP-ASTRAZENECA-2006AP05536

PATIENT
  Age: 28297 Day
  Sex: Male
  Weight: 64 kg

DRUGS (6)
  1. OMEPRAZOLE [Suspect]
     Indication: GASTRIC ULCER
     Route: 048
     Dates: start: 20061111, end: 20061120
  2. TICLOPIDINE HCL [Suspect]
     Indication: ACUTE MYOCARDIAL INFARCTION
     Route: 048
     Dates: start: 20061111, end: 20061120
  3. DIOVAN [Suspect]
     Indication: HYPERTENSION
     Route: 048
     Dates: start: 20061116, end: 20061120
  4. EUGLUCON [Suspect]
     Indication: DIABETES MELLITUS
     Route: 048
     Dates: start: 20061111, end: 20061120
  5. ENALAPRIL MALEATE [Suspect]
     Indication: HYPERTENSION
     Route: 048
     Dates: start: 20061111, end: 20061115
  6. BUFFERIN [Suspect]
     Indication: ACUTE MYOCARDIAL INFARCTION
     Route: 048
     Dates: start: 20061110

REACTIONS (1)
  - INTERSTITIAL LUNG DISEASE [None]
